FAERS Safety Report 18462274 (Version 1)
Quarter: 2020Q4

REPORT INFORMATION
  Report Type: Spontaneous
  Country: US (occurrence: US)
  Receive Date: 20201103
  Receipt Date: 20201103
  Transmission Date: 20210114
  Serious: Yes (Life-Threatening, Hospitalization)
  Sender: FDA-Public Use
  Company Number: None

PATIENT
  Age: 62 Year
  Sex: Female

DRUGS (2)
  1. CELECOXIB. [Suspect]
     Active Substance: CELECOXIB
  2. WARFARIN [Suspect]
     Active Substance: WARFARIN

REACTIONS (12)
  - Haematoma muscle [None]
  - Therapy cessation [None]
  - Fall [None]
  - Pain in extremity [None]
  - Hypotension [None]
  - Acute kidney injury [None]
  - International normalised ratio increased [None]
  - Sepsis [None]
  - Peripheral swelling [None]
  - Head injury [None]
  - Pyelonephritis [None]
  - Haemoglobin decreased [None]

NARRATIVE: CASE EVENT DATE: 20200218
